FAERS Safety Report 4724506-0 (Version None)
Quarter: 2005Q3

REPORT INFORMATION
  Report Type: 
  Country: None (occurrence: None)
  Receive Date: 20050720
  Receipt Date: 20050720
  Transmission Date: 20060218
  Serious: Yes (Hospitalization, Other)
  Sender: FDA-Public Use
  Company Number: None

PATIENT
  Sex: Female
  Weight: 72 kg

DRUGS (2)
  1. FLUOROURACIL [Suspect]
     Indication: ANAL CANCER
     Dosage: SEE IMAGE
     Route: 042
     Dates: start: 20050428, end: 20050501
  2. MITOMYCIN [Suspect]
     Dosage: SEE IMAGE
     Route: 040
     Dates: start: 20050428, end: 20050428

REACTIONS (3)
  - ABDOMINAL PAIN UPPER [None]
  - FEBRILE NEUTROPENIA [None]
  - URINARY TRACT INFECTION [None]
